FAERS Safety Report 4678872-5 (Version None)
Quarter: 2005Q2

REPORT INFORMATION
  Report Type: 
  Country: None (occurrence: None)
  Receive Date: 20050531
  Receipt Date: 20050516
  Transmission Date: 20051028
  Serious: Yes (Other)
  Sender: FDA-Public Use
  Company Number: 2005065309

PATIENT
  Age: 57 Year
  Sex: Male
  Weight: 86.1834 kg

DRUGS (10)
  1. CAVERJECT [Suspect]
     Indication: ILL-DEFINED DISORDER
     Dosage: (40 MCG) INTRACAVERNOSA)
     Route: 017
  2. HYZAAR [Concomitant]
  3. BUPROPION HYDROCHLORIDE [Concomitant]
  4. ENALAPRIL MALEATE (ENALAPIRL MALEATE) [Concomitant]
  5. EFAVIRENZ (EFAVIRENZ) [Concomitant]
  6. TESTOSTERONE [Concomitant]
  7. NELFINAVIR MESILATE (NELFINAVIR MESILATE) [Concomitant]
  8. DULOXETINE HYDROCHLORIDE (DULOXETIENE HYDROCHLORIDE) [Concomitant]
  9. LAMIVUDINE [Concomitant]
  10. DIDANOSINE [Concomitant]

REACTIONS (4)
  - DRUG INEFFECTIVE [None]
  - LYMPHOMA [None]
  - MEDICATION ERROR [None]
  - NEOPLASM RECURRENCE [None]
